FAERS Safety Report 13385049 (Version 1)
Quarter: 2017Q1

REPORT INFORMATION
  Report Type: Spontaneous
  Country: US (occurrence: US)
  Receive Date: 20170329
  Receipt Date: 20170329
  Transmission Date: 20170429
  Serious: Yes (Hospitalization)
  Sender: FDA-Public Use
  Company Number: US-VIFOR (INTERNATIONAL) INC.-VIT-2017-03344

PATIENT
  Sex: Female

DRUGS (17)
  1. BUPROPION HYDROCHLORIDE. [Concomitant]
     Active Substance: BUPROPION HYDROCHLORIDE
  2. LEVOTHYROXINE SODIUM. [Concomitant]
     Active Substance: LEVOTHYROXINE SODIUM
  3. PRAVASTATIN SODIUM. [Concomitant]
     Active Substance: PRAVASTATIN SODIUM
  4. PYRIDOXINE HYDROCHLORIDE. [Concomitant]
     Active Substance: PYRIDOXINE HYDROCHLORIDE
  5. PANTOPRAZOLE SODIUM SESQUIHYDRATE [Concomitant]
     Active Substance: PANTOPRAZOLE SODIUM
  6. CLOPIDOGREL BISULFATE. [Concomitant]
     Active Substance: CLOPIDOGREL BISULFATE
  7. PRAVASTATIN SODIUM. [Concomitant]
     Active Substance: PRAVASTATIN SODIUM
  8. GLIPIZIDE. [Concomitant]
     Active Substance: GLIPIZIDE
  9. CYANOCOBALAMIN. [Concomitant]
     Active Substance: CYANOCOBALAMIN
  10. CALCIUM CITRATE [Concomitant]
     Active Substance: CALCIUM CITRATE
  11. VELTASSA [Suspect]
     Active Substance: PATIROMER
     Indication: HYPERKALAEMIA
     Route: 048
     Dates: start: 20161020
  12. CARVEDILOL. [Concomitant]
     Active Substance: CARVEDILOL
  13. PLAVIX [Concomitant]
     Active Substance: CLOPIDOGREL BISULFATE
  14. ERGOCALCIFEROL. [Concomitant]
     Active Substance: ERGOCALCIFEROL
  15. ACETYLSALICYLIC ACID [Concomitant]
     Active Substance: ASPIRIN
  16. FUROSEMIDE. [Concomitant]
     Active Substance: FUROSEMIDE
  17. LOSARTAN POTASSIUM. [Concomitant]
     Active Substance: LOSARTAN POTASSIUM

REACTIONS (3)
  - Cardiac disorder [Unknown]
  - Stent placement [Unknown]
  - Blood insulin abnormal [Unknown]

NARRATIVE: CASE EVENT DATE: 2017
